FAERS Safety Report 5745796-1 (Version None)
Quarter: 2008Q2

REPORT INFORMATION
  Report Type: 
  Country: None (occurrence: None)
  Receive Date: 20080521
  Receipt Date: 20080513
  Transmission Date: 20081010
  Serious: Yes (Other)
  Sender: FDA-Public Use
  Company Number: FR-PFIZER INC-2008041771

PATIENT
  Age: 66 Year
  Sex: Female

DRUGS (9)
  1. AROMASIN [Suspect]
     Indication: BREAST CANCER
     Dates: start: 20080503, end: 20080505
  2. ACETAMINOPHEN [Concomitant]
     Route: 048
  3. FENOFIBRATE [Concomitant]
  4. BREXIN [Concomitant]
  5. LEVOTHYROXINE SODIUM [Concomitant]
  6. TENORMIN [Concomitant]
  7. TANAKAN [Concomitant]
  8. STABLON [Concomitant]
  9. XANAX [Concomitant]

REACTIONS (1)
  - GENERALISED ERYTHEMA [None]
